FAERS Safety Report 7638893-7 (Version None)
Quarter: 2011Q3

REPORT INFORMATION
  Report Type: 
  Country: None (occurrence: None)
  Receive Date: 20110721
  Receipt Date: 20110707
  Transmission Date: 20111222
  Serious: Yes (Death, Other)
  Sender: FDA-Public Use
  Company Number: MC201100184

PATIENT

DRUGS (1)
  1. ANGIOMAX [Suspect]

REACTIONS (4)
  - OFF LABEL USE [None]
  - POST PROCEDURAL HAEMORRHAGE [None]
  - HAEMORRHAGE [None]
  - COAGULATION TIME PROLONGED [None]
